FAERS Safety Report 8696928 (Version 3)
Quarter: 2012Q4

REPORT INFORMATION
  Report Type: 
  Country: US (occurrence: US)
  Receive Date: 20120801
  Receipt Date: 20121031
  Transmission Date: 20130627
  Serious: Yes (Other)
  Sender: FDA-Public Use
  Company Number: PHEH2012US011781

PATIENT
  Sex: Female
  Weight: 54.42 kg

DRUGS (12)
  1. GILENYA [Suspect]
     Indication: MULTIPLE SCLEROSIS
     Dosage: 0.5 mg, QD
     Route: 048
     Dates: start: 20120502
  2. COZAAR [Concomitant]
     Dosage: 100 mg, UNK
  3. FLEXERIL [Concomitant]
     Dosage: UNK UKN, UNK
  4. FIORICET [Concomitant]
     Dosage: UNK UKN, UNK
  5. CELEBREX [Concomitant]
     Dosage: UNK UKN, UNK
  6. BENADRYL CD [Concomitant]
     Dosage: UNK UKN, UNK
  7. ANAPROX [Concomitant]
     Dosage: UNK UKN, UNK
  8. ASPIRIN ^BAYER^ [Concomitant]
     Dosage: UNK UKN, UNK
  9. XYZAL [Concomitant]
     Dosage: UNK UKN, UNK
  10. BENTYL [Concomitant]
     Dosage: UNK UKN, UNK
  11. PROTONIX ^PHARMACIA^ [Concomitant]
     Dosage: UNK UKN, UNK
  12. AMPYRA [Concomitant]
     Dosage: UNK UKN, UNK

REACTIONS (15)
  - Hypoaesthesia [Unknown]
  - Sensation of heaviness [Unknown]
  - Muscle rigidity [Unknown]
  - Eye irritation [Recovering/Resolving]
  - Memory impairment [Unknown]
  - Dysuria [Unknown]
  - Pain in extremity [Unknown]
  - Chest discomfort [Recovering/Resolving]
  - Gait disturbance [Recovering/Resolving]
  - Muscular weakness [Unknown]
  - Fatigue [Unknown]
  - Blood pressure increased [Recovering/Resolving]
  - Asthenia [Unknown]
  - Eye pain [Recovering/Resolving]
  - Headache [Unknown]
